FAERS Safety Report 9719221 (Version 2)
Quarter: 2013Q4

REPORT INFORMATION
  Report Type: Report from Study
  Country: AR (occurrence: AR)
  Receive Date: 20131127
  Receipt Date: 20131219
  Transmission Date: 20140711
  Serious: Yes (Hospitalization, Other)
  Sender: FDA-Public Use
  Company Number: PHHY2013AR134562

PATIENT
  Sex: Male

DRUGS (4)
  1. ONBREZ [Suspect]
     Indication: CHRONIC OBSTRUCTIVE PULMONARY DISEASE
     Dosage: UNK UKN, UNK
     Route: 055
  2. DIOVAN [Suspect]
     Indication: HYPERTENSION
     Dosage: 80 MG, UNK
     Route: 048
     Dates: start: 2006
  3. DIOVAN [Suspect]
     Dosage: 160 MG (HALF TABLET OF 320MG), UNK
     Route: 048
  4. LOSACOR D [Concomitant]
     Indication: BLOOD PRESSURE ABNORMAL
     Dosage: UNK UKN, UNK
     Route: 048
     Dates: start: 201301

REACTIONS (8)
  - Pneumonia [Recovered/Resolved]
  - Blood pressure decreased [Recovered/Resolved]
  - Maculopathy [Not Recovered/Not Resolved]
  - Infarction [Recovered/Resolved]
  - Arterial occlusive disease [Unknown]
  - Limb discomfort [Unknown]
  - Retinal disorder [Not Recovered/Not Resolved]
  - Hypertension [Unknown]
